FAERS Safety Report 9223670 (Version 1)
Quarter: 2013Q2

REPORT INFORMATION
  Report Type: Spontaneous
  Country: DE (occurrence: DE)
  Receive Date: 20130410
  Receipt Date: 20130410
  Transmission Date: 20140414
  Serious: Yes (Life-Threatening, Hospitalization)
  Sender: FDA-Public Use
  Company Number: DE-ELI_LILLY_AND_COMPANY-DE201304000829

PATIENT
  Sex: Female

DRUGS (4)
  1. FORSTEO [Suspect]
     Indication: OSTEOPOROSIS
     Dosage: UNK UNK, QD
     Route: 058
     Dates: start: 20130301, end: 20130329
  2. CORTISONE [Concomitant]
     Dosage: 8MG/TWICE
  3. NOVALGIN [Concomitant]
  4. TILIDIN [Concomitant]

REACTIONS (5)
  - Platelet count decreased [Not Recovered/Not Resolved]
  - Pain in extremity [Not Recovered/Not Resolved]
  - Hypotension [Not Recovered/Not Resolved]
  - Renal impairment [Not Recovered/Not Resolved]
  - General physical condition abnormal [Not Recovered/Not Resolved]
